FAERS Safety Report 4831309-5 (Version None)
Quarter: 2005Q4

REPORT INFORMATION
  Report Type: 
  Country: None (occurrence: None)
  Receive Date: 20051114
  Receipt Date: 20051028
  Transmission Date: 20060501
  Serious: Yes (Death)
  Sender: FDA-Public Use
  Company Number: 2005RR-00999

PATIENT
  Age: 63 Year
  Sex: Male

DRUGS (13)
  1. LISINOPRIL [Suspect]
     Dosage: 10 MG, QD
  2. SPIRIVA [Suspect]
     Indication: CHRONIC OBSTRUCTIVE PULMONARY DISEASE
     Dosage: 18 UG, QD
  3. BUMETANIDE (BUMETANIDE) TABLET [Suspect]
     Dosage: 1 MG, QD
  4. HUMALOG [Suspect]
     Dosage: 100 IU/ML, QD
  5. FOSAMAX [Suspect]
     Dosage: 70 MG, SINGLE
  6. HUMULIN (INSULIN HUMAN) [Suspect]
     Dosage: 100 U/ML, QD
  7. HUMULIN M3 (INSULIN HUMAN) [Suspect]
     Dosage: 100 IU, QD
  8. MONTELUKAST (MONTELUKAST) [Suspect]
     Dosage: 10 MG, QD
  9. NYSTATIN [Suspect]
     Dosage: 100,000 UNITS
  10. PARACETAMOL (PARACETAMOL) [Suspect]
     Dosage: 500 MG, QD
  11. SALBUTAMOL (SULBUTAMOL) [Suspect]
     Dosage: 100 UG, QD, RESPIRATORY
     Route: 055
  12. SERETIDE (SALMETEROL + FLUICASONE) [Suspect]
     Dosage: 500 UNK, UNK, UNKNOWN
  13. TRAMADOL HCL [Suspect]
     Dosage: 50 MG, QD

REACTIONS (1)
  - LOBAR PNEUMONIA [None]
